FAERS Safety Report 6223330-X (Version None)
Quarter: 2009Q2

REPORT INFORMATION
  Report Type: 
  Country: None (occurrence: None)
  Receive Date: 20090611
  Receipt Date: 20090604
  Transmission Date: 20091009
  Serious: Yes (Death)
  Sender: FDA-Public Use
  Company Number: FR-ELI_LILLY_AND_COMPANY-FR200906001379

PATIENT
  Sex: Male
  Weight: 108 kg

DRUGS (11)
  1. DROTRECOGIN ALFA (ACTIVATED) [Suspect]
     Indication: SEPSIS
     Dosage: 24 UG/KG/H
     Route: 042
     Dates: start: 20071003, end: 20071007
  2. MIDAZOLAM HCL [Concomitant]
     Indication: PAIN
     Dates: start: 20070925
  3. MORPHINE [Concomitant]
     Indication: PAIN
     Dates: start: 20070925
  4. NEXIUM [Concomitant]
     Indication: PROPHYLAXIS AGAINST GASTROINTESTINAL ULCER
     Dates: start: 20071008
  5. INSULIN [Concomitant]
     Indication: BLOOD GLUCOSE INCREASED
     Dates: start: 20070925
  6. ADRENALIN [Concomitant]
     Indication: CARDIAC DISORDER
     Dates: start: 20071006
  7. DOBUTREX [Concomitant]
     Indication: CARDIAC DISORDER
     Dates: start: 20071004, end: 20071005
  8. TIENAM [Concomitant]
     Indication: ANTIBIOTIC THERAPY
     Dates: start: 20071006
  9. NEBCIN [Concomitant]
     Indication: ANTIBIOTIC THERAPY
     Dates: start: 20071006
  10. CALCIPARINE [Concomitant]
     Indication: ANTICOAGULANT THERAPY
     Dates: start: 20070925, end: 20071004
  11. ORBENIN CAP [Concomitant]
     Indication: ANTIBIOTIC THERAPY

REACTIONS (2)
  - CEREBRAL HAEMORRHAGE [None]
  - MULTI-ORGAN FAILURE [None]
